FAERS Safety Report 14749853 (Version 1)
Quarter: 2018Q2

REPORT INFORMATION
  Report Type: Spontaneous
  Country: ZA (occurrence: ZA)
  Receive Date: 20180412
  Receipt Date: 20180412
  Transmission Date: 20180711
  Serious: Yes (Other)
  Sender: FDA-Public Use
  Company Number: ZA-SUN PHARMACEUTICAL INDUSTRIES LTD-2018RR-169706

PATIENT
  Age: 48 Year
  Sex: Female

DRUGS (3)
  1. ASPIRIN. [Suspect]
     Active Substance: ASPIRIN
     Dosage: DAY 2: 150 MG AT 8 AM, 250 MG AT 11 AM AND 325 MG AT 2 PM
     Route: 065
  2. ASPIRIN. [Suspect]
     Active Substance: ASPIRIN
     Indication: IMMUNE TOLERANCE INDUCTION
     Dosage: DAY 1: 20 MG, AT 8 AM, 40 MG AT 11 AM AND 90 MG AT 2 PM
     Route: 065
  3. ASPIRIN. [Suspect]
     Active Substance: ASPIRIN
     Dosage: DAY 3: 600 MG, AT 8 AM
     Route: 065

REACTIONS (1)
  - Myoclonus [Recovered/Resolved]
